FAERS Safety Report 11327457 (Version 4)
Quarter: 2015Q3

REPORT INFORMATION
  Report Type: Spontaneous
  Country: US (occurrence: US)
  Receive Date: 20150731
  Receipt Date: 20150921
  Transmission Date: 20151125
  Serious: Yes (Hospitalization, Other)
  Sender: FDA-Public Use
  Company Number: US-PFIZER INC-2015253179

PATIENT
  Age: 69 Year
  Sex: Female
  Weight: 52 kg

DRUGS (19)
  1. LEVOTHYROXINE. [Concomitant]
     Active Substance: LEVOTHYROXINE
     Indication: HYPOTHYROIDISM
     Dosage: 88 MG, 1X/DAY
  2. HYDROCODONE BITARTRATE W/PARACETAMOL [Concomitant]
     Active Substance: ACETAMINOPHEN\HYDROCODONE BITARTRATE
     Dosage: UNK
     Dates: start: 201405
  3. LYRICA [Suspect]
     Active Substance: PREGABALIN
     Dosage: 150 MG, 3X/DAY
     Route: 048
  4. HYDROCODONE [Suspect]
     Active Substance: HYDROCODONE
     Dosage: 10 MG, AS NEEDED
     Dates: start: 20140520
  5. OSCAL PLUS D [Concomitant]
     Indication: MINERAL SUPPLEMENTATION
     Dosage: 2 DF, DAILY
     Dates: end: 201508
  6. MELOXICAM. [Concomitant]
     Active Substance: MELOXICAM
     Indication: ARTHRITIS
     Dosage: 15 MG, 1X/DAY
     Dates: end: 201508
  7. PHENERGAN W/ CODEINE [Concomitant]
     Active Substance: CODEINE PHOSPHATE\PROMETHAZINE HYDROCHLORIDE
     Indication: BRONCHITIS
  8. NEBULIZER ALBUTEROL [Concomitant]
     Active Substance: ALBUTEROL
     Indication: BRONCHITIS
  9. FOSAMAX [Concomitant]
     Active Substance: ALENDRONATE SODIUM
     Indication: OSTEOGENESIS IMPERFECTA
     Dosage: 70 MG, WEEKLY
     Dates: end: 201508
  10. NEBULIZER ALBUTEROL [Concomitant]
     Active Substance: ALBUTEROL
     Indication: RESPIRATORY DISORDER
     Dosage: UNK, AS NEEDED
  11. LYRICA [Suspect]
     Active Substance: PREGABALIN
     Dosage: 150 MG, 2X/DAY
     Dates: start: 201411
  12. AMLODIPINE [Concomitant]
     Active Substance: AMLODIPINE BESYLATE
     Indication: HYPERTENSION
     Dosage: 10 MG, UNK
  13. THEOPHYLLINE [Concomitant]
     Active Substance: THEOPHYLLINE ANHYDROUS
     Indication: RESPIRATORY DISORDER
     Dosage: 400 MG, 1X/DAY
  14. HYDROCODONE [Suspect]
     Active Substance: HYDROCODONE
     Indication: PAIN
     Dosage: 5 MG, UNK
     Dates: start: 201405
  15. HYDROCODONE [Suspect]
     Active Substance: HYDROCODONE
     Dosage: 7.5 MG, UNK
  16. PHENERGAN W/ CODEINE [Concomitant]
     Active Substance: CODEINE PHOSPHATE\PROMETHAZINE HYDROCHLORIDE
     Indication: COUGH
     Dosage: UNK, CYCLIC (TAKEN ON+ OFF FOR YEARS)
  17. LYRICA [Suspect]
     Active Substance: PREGABALIN
     Indication: PAIN
     Dosage: 75 MG, UNK
  18. LYRICA [Suspect]
     Active Substance: PREGABALIN
     Indication: BURNING SENSATION
     Dosage: 50 MG, UNK
     Dates: start: 201406
  19. NEBULIZER ALBUTEROL [Concomitant]
     Active Substance: ALBUTEROL
     Indication: CHRONIC OBSTRUCTIVE PULMONARY DISEASE

REACTIONS (10)
  - Feeling abnormal [Recovered/Resolved]
  - Gait disturbance [Recovered/Resolved]
  - Gastritis [Recovered/Resolved]
  - Drug ineffective [Unknown]
  - Haemochromatosis [Not Recovered/Not Resolved]
  - Weight decreased [Recovered/Resolved]
  - Large intestine polyp [Recovered/Resolved]
  - Loss of consciousness [Recovered/Resolved]
  - Breast cancer stage II [Recovered/Resolved]
  - Diabetes mellitus [Recovering/Resolving]

NARRATIVE: CASE EVENT DATE: 20140717
